FAERS Safety Report 13563939 (Version 1)
Quarter: 2017Q2

REPORT INFORMATION
  Report Type: Spontaneous
  Country: DK (occurrence: DK)
  Receive Date: 20170519
  Receipt Date: 20170519
  Transmission Date: 20170830
  Serious: Yes (Hospitalization)
  Sender: FDA-Public Use
  Company Number: DK-TEVA-767303ACC

PATIENT
  Age: 79 Year
  Sex: Female

DRUGS (16)
  1. FOLIMET [Concomitant]
     Indication: BLOOD FOLATE ABNORMAL
     Route: 048
  2. PINEX [Concomitant]
     Active Substance: ACETAMINOPHEN
     Indication: PAIN
  3. SPIRIVA [Concomitant]
     Active Substance: TIOTROPIUM BROMIDE MONOHYDRATE
     Indication: CHRONIC OBSTRUCTIVE PULMONARY DISEASE
  4. LATANOPROST ^PFIZER^ [Concomitant]
     Indication: GLAUCOMA
     Route: 050
  5. SYMBICORT FORTE TURBOHALER [Concomitant]
     Indication: PRODUCT USED FOR UNKNOWN INDICATION
     Route: 055
  6. FURIX [Concomitant]
     Active Substance: FUROSEMIDE
     Indication: OEDEMA
  7. MIRTAZAPIN ^ACTAVIS^ [Concomitant]
     Active Substance: MIRTAZAPINE
     Indication: DEPRESSION
     Route: 048
  8. MORFIN ^DAK^ [Concomitant]
     Indication: PAIN
  9. ALENDRONATE TEVA [Suspect]
     Active Substance: ALENDRONATE SODIUM
     Indication: OSTEOPOROSIS
     Route: 048
     Dates: end: 20170501
  10. MUCOMYST [Concomitant]
     Active Substance: ACETYLCYSTEINE
     Indication: CHRONIC OBSTRUCTIVE PULMONARY DISEASE
  11. VENTOLINE [Concomitant]
     Active Substance: ALBUTEROL
     Indication: CHRONIC OBSTRUCTIVE PULMONARY DISEASE
  12. ELTROXIN [Concomitant]
     Active Substance: LEVOTHYROXINE
     Indication: MYXOEDEMA
     Route: 048
  13. KALEORID [Concomitant]
     Active Substance: POTASSIUM CHLORIDE
     Indication: HYPOKALAEMIA
     Route: 048
  14. FENTANYL ^SANDOZ^ [Concomitant]
     Indication: PAIN
     Route: 003
  15. LACTULOSE ^ORIFARM^ [Concomitant]
     Indication: CONSTIPATION
     Route: 048
  16. NICORETTE [Concomitant]
     Active Substance: NICOTINE
     Indication: SMOKING CESSATION THERAPY

REACTIONS (5)
  - Dehydration [Unknown]
  - Chest discomfort [Unknown]
  - Odynophagia [Unknown]
  - Feeding disorder [Recovered/Resolved]
  - Oesophagitis [Unknown]

NARRATIVE: CASE EVENT DATE: 20170321
